FAERS Safety Report 6453725-0 (Version None)
Quarter: 2009Q4

REPORT INFORMATION
  Report Type: 
  Country: None (occurrence: None)
  Receive Date: 20091124
  Receipt Date: 20090826
  Transmission Date: 20100525
  Serious: No
  Sender: FDA-Public Use
  Company Number: US-AMGEN-US361192

PATIENT
  Sex: Male
  Weight: 155 kg

DRUGS (6)
  1. NPLATE [Suspect]
     Indication: IDIOPATHIC THROMBOCYTOPENIC PURPURA
  2. ACTOS [Concomitant]
  3. METOPROLOL TARTRATE [Concomitant]
  4. GLIPIZIDE [Concomitant]
  5. OLOPATADINE [Concomitant]
     Route: 045
  6. MAXAIR [Concomitant]

REACTIONS (2)
  - MEDICATION ERROR [None]
  - OVERDOSE [None]
